FAERS Safety Report 4293569-1 (Version None)
Quarter: 2004Q1

REPORT INFORMATION
  Report Type: 
  Country: None (occurrence: None)
  Receive Date: 20040210
  Receipt Date: 20040130
  Transmission Date: 20041129
  Serious: Yes (Hospitalization, Other)
  Sender: FDA-Public Use
  Company Number: BR-JNJFOC-20040200060

PATIENT
  Age: 63 Year
  Sex: Female

DRUGS (2)
  1. HALDOL [Suspect]
     Indication: SCHIZOAFFECTIVE DISORDER
     Dosage: 2 MG, IN 1 DAY
     Dates: start: 20021101
  2. RAD TABLET (ALL OTHER THERAPEUTIC PRODUCTS) TABLETS [Suspect]
     Indication: RENAL TRANSPLANT
     Dosage: 0.75 MG, 2 IN 1 DAY, ORAL
     Route: 048
     Dates: start: 20020331

REACTIONS (7)
  - CONDITION AGGRAVATED [None]
  - DIZZINESS [None]
  - EXTRAPYRAMIDAL DISORDER [None]
  - LOSS OF CONSCIOUSNESS [None]
  - MUSCLE RIGIDITY [None]
  - MUSCULAR WEAKNESS [None]
  - SCHIZOPHRENIA [None]
